FAERS Safety Report 26082141 (Version 1)
Quarter: 2025Q4

REPORT INFORMATION
  Report Type: Spontaneous
  Country: EU (occurrence: EU)
  Receive Date: 20251124
  Receipt Date: 20251124
  Transmission Date: 20260117
  Serious: Yes (Death, Hospitalization, Other)
  Sender: JOHNSON AND JOHNSON
  Company Number: EU-BASILEA PHARMACEUTICA DEUTSCHLAND GMBH-SI-BAS-25-01906

PATIENT
  Age: 66 Year
  Sex: Male

DRUGS (5)
  1. ITRACONAZOLE [Suspect]
     Active Substance: ITRACONAZOLE
     Indication: Renal transplant
     Dosage: UNK?THERAPY START DATE: -FEB-2024
     Route: 065
  2. ISAVUCONAZONIUM SULFATE [Suspect]
     Active Substance: ISAVUCONAZONIUM SULFATE
     Indication: Fungal infection
     Dosage: UNK
     Route: 065
     Dates: start: 2024
  3. TACROLIMUS [Suspect]
     Active Substance: TACROLIMUS
     Indication: Renal transplant
     Dosage: UNK
     Route: 065
     Dates: end: 2024
  4. TACROLIMUS [Suspect]
     Active Substance: TACROLIMUS
     Dosage: UNK
     Route: 065
     Dates: start: 2024
  5. AZATHIOPRINE [Suspect]
     Active Substance: AZATHIOPRINE
     Indication: Renal transplant
     Dosage: UNK
     Route: 065
     Dates: end: 2024

REACTIONS (3)
  - Cardiac arrest [Fatal]
  - Superinfection bacterial [Fatal]
  - Off label use [Unknown]

NARRATIVE: CASE EVENT DATE: 20240101
